FAERS Safety Report 7860251-0 (Version None)
Quarter: 2011Q4

REPORT INFORMATION
  Report Type: 
  Country: None (occurrence: None)
  Receive Date: 20111027
  Receipt Date: 20111019
  Transmission Date: 20120403
  Serious: Yes (Hospitalization, Disabling, Other)
  Sender: FDA-Public Use
  Company Number: BR-SANOFI-AVENTIS-2011SA069541

PATIENT
  Age: 76 Year
  Sex: Female
  Weight: 70 kg

DRUGS (10)
  1. QUESTRAN LIGHT [Concomitant]
  2. LANTUS [Suspect]
  3. METFFORMIN HYDROCHLORIDE [Concomitant]
  4. AMLODIPINE [Concomitant]
  5. LANTUS [Suspect]
     Route: 058
  6. SIMVASTATIN [Concomitant]
  7. SYNTHROID [Concomitant]
  8. JANUVIA [Concomitant]
  9. LOSARTAN POTASSIUM [Concomitant]
  10. ALDACTONE [Concomitant]

REACTIONS (3)
  - HYPERGLYCAEMIA [None]
  - CEREBROVASCULAR ACCIDENT [None]
  - HEMIPLEGIA [None]
